FAERS Safety Report 14078117 (Version 1)
Quarter: 2017Q4

REPORT INFORMATION
  Report Type: Spontaneous
  Country: US (occurrence: US)
  Receive Date: 20171012
  Receipt Date: 20171012
  Transmission Date: 20180321
  Serious: No
  Sender: FDA-Public Use
  Company Number: US-MYLANLABS-2017M1017238

PATIENT
  Sex: Female

DRUGS (1)
  1. TRETINOIN. [Suspect]
     Active Substance: TRETINOIN
     Indication: ACNE
     Dosage: UNK UNK, ONCE
     Dates: start: 20170223, end: 20170223

REACTIONS (2)
  - Application site erythema [Unknown]
  - Application site dryness [Unknown]

NARRATIVE: CASE EVENT DATE: 2017
